FAERS Safety Report 9715715 (Version 1)
Quarter: 2013Q4

REPORT INFORMATION
  Report Type: Spontaneous
  Country: US (occurrence: US)
  Receive Date: 20131127
  Receipt Date: 20131127
  Transmission Date: 20140711
  Serious: Yes (Other)
  Sender: FDA-Public Use
  Company Number: US-009507513-1311USA008800

PATIENT
  Sex: Female

DRUGS (2)
  1. FOLLISTIM AQ CARTRIDGE [Suspect]
     Indication: PREGNANCY
     Dosage: 300 UNITS
  2. GANIRELIX ACETATE INJECTION [Suspect]
     Dosage: UNK

REACTIONS (1)
  - Abortion spontaneous [Unknown]
